FAERS Safety Report 14608398 (Version 1)
Quarter: 2018Q1

REPORT INFORMATION
  Report Type: Spontaneous
  Country: FR (occurrence: FR)
  Receive Date: 20180307
  Receipt Date: 20180307
  Transmission Date: 20180509
  Serious: Yes (Hospitalization)
  Sender: FDA-Public Use
  Company Number: FR-ASTRAZENECA-2018SE25755

PATIENT
  Age: 49 Year
  Sex: Male
  Weight: 85 kg

DRUGS (5)
  1. OGASTORO [Suspect]
     Active Substance: LANSOPRAZOLE
     Indication: PROPHYLAXIS
     Route: 048
     Dates: start: 20171016, end: 20171019
  2. NIMOTOP [Suspect]
     Active Substance: NIMODIPINE
     Indication: PROPHYLAXIS
     Route: 041
     Dates: start: 20171014, end: 20171024
  3. OMNIPAQUE [Suspect]
     Active Substance: IOHEXOL
     Indication: ANGIOGRAM CEREBRAL
     Route: 041
     Dates: start: 20171017, end: 20171017
  4. CRESTOR [Suspect]
     Active Substance: ROSUVASTATIN CALCIUM
     Indication: PROPHYLAXIS
     Route: 048
     Dates: start: 20171016, end: 20171019
  5. KEPPRA [Suspect]
     Active Substance: LEVETIRACETAM
     Indication: EPILEPSY
     Route: 048
     Dates: start: 20171016, end: 20171020

REACTIONS (3)
  - Pyrexia [Recovering/Resolving]
  - Hepatocellular injury [Recovering/Resolving]
  - Acute generalised exanthematous pustulosis [Recovering/Resolving]

NARRATIVE: CASE EVENT DATE: 20171018
